FAERS Safety Report 7410898-0 (Version None)
Quarter: 2011Q2

REPORT INFORMATION
  Report Type: 
  Country: None (occurrence: None)
  Receive Date: 20110413
  Receipt Date: 20110408
  Transmission Date: 20111010
  Serious: Yes (Hospitalization)
  Sender: FDA-Public Use
  Company Number: AU-AMGEN-AUSSP2010010573

PATIENT
  Sex: Female

DRUGS (8)
  1. PREDNISOLONE [Suspect]
     Dosage: 2MG, DAILY
  2. NPLATE [Suspect]
     Indication: IDIOPATHIC THROMBOCYTOPENIC PURPURA
  3. CALTRATE                           /00108001/ [Concomitant]
  4. VITAMIN A [Concomitant]
  5. INTRAGAM                           /00025201/ [Suspect]
     Dosage: 57 G, UNK
     Dates: start: 20100309, end: 20100309
  6. BLOOD SUBSTITUTES AND PLASMA PROTEIN FRACTION [Concomitant]
     Dosage: UNK
     Dates: start: 20100831
  7. PAROXETINE [Concomitant]
  8. PANTOPRAZOLE [Concomitant]
     Dosage: 40 MG, QD

REACTIONS (7)
  - HYPERTENSION [None]
  - BLOOD PRESSURE INCREASED [None]
  - CHEST PAIN [None]
  - ACUTE MYOCARDIAL INFARCTION [None]
  - TACHYCARDIA [None]
  - TROPONIN INCREASED [None]
  - ELECTROCARDIOGRAM ST SEGMENT ELEVATION [None]
